FAERS Safety Report 9924324 (Version 2)
Quarter: 2014Q2

REPORT INFORMATION
  Report Type: Spontaneous
  Country: FR (occurrence: FR)
  Receive Date: 20140226
  Receipt Date: 20140512
  Transmission Date: 20141212
  Serious: Yes (Hospitalization, Other)
  Sender: FDA-Public Use
  Company Number: FR-009507513-1402FRA008973

PATIENT
  Age: 57 Year
  Sex: Female
  Weight: 55 kg

DRUGS (2)
  1. TEMODAL [Suspect]
     Indication: GLIOBLASTOMA
     Dosage: 100 MG, QD
     Route: 065
  2. AVASTIN (BEVACIZUMAB) [Suspect]
     Indication: GLIOBLASTOMA
     Route: 042

REACTIONS (2)
  - Thrombotic microangiopathy [Unknown]
  - Febrile neutropenia [Recovered/Resolved]
